FAERS Safety Report 25005235 (Version 1)
Quarter: 2025Q1

REPORT INFORMATION
  Report Type: Spontaneous
  Country: FR (occurrence: FR)
  Receive Date: 20250224
  Receipt Date: 20250224
  Transmission Date: 20250409
  Serious: Yes (Other)
  Sender: TEVA
  Company Number: FR-SA-2025SA040323

PATIENT
  Age: 57 Year
  Sex: Female
  Weight: 67 kg

DRUGS (18)
  1. LANSOPRAZOLE [Suspect]
     Active Substance: LANSOPRAZOLE
     Indication: Prophylaxis against gastrointestinal ulcer
     Dosage: 15 MILLIGRAM, QD
     Route: 048
     Dates: end: 20241015
  2. DOXORUBICIN HYDROCHLORIDE [Suspect]
     Active Substance: DOXORUBICIN HYDROCHLORIDE
     Indication: Hodgkin^s disease
     Route: 042
  3. APREPITANT [Suspect]
     Active Substance: APREPITANT
     Indication: Vomiting
     Dosage: 320 MILLIGRAM, 1/WEEK
     Route: 048
  4. LEUCOVORIN CALCIUM [Suspect]
     Active Substance: LEUCOVORIN CALCIUM
     Indication: Vitamin supplementation
     Dosage: 2 DOSAGE FORM, 1/WEEK
     Route: 048
  5. LEUCOVORIN CALCIUM [Suspect]
     Active Substance: LEUCOVORIN CALCIUM
     Indication: Vitamin supplementation
     Dosage: 2 DOSAGE FORM, 1/WEEK
     Route: 048
  6. METHYLPREDNISOLONE [Suspect]
     Active Substance: METHYLPREDNISOLONE
     Indication: Hodgkin^s disease
     Route: 042
  7. MORPHINE SULFATE [Suspect]
     Active Substance: MORPHINE SULFATE
     Indication: Pain
     Dosage: 5 MILLIGRAM, QD
     Route: 048
  8. MORPHINE SULFATE [Suspect]
     Active Substance: MORPHINE SULFATE
     Indication: Pain
     Dosage: 20 MILLIGRAM, QD
     Route: 048
     Dates: start: 20240923
  9. ONDANSETRON HYDROCHLORIDE [Suspect]
     Active Substance: ONDANSETRON HYDROCHLORIDE
     Indication: Vomiting
     Dosage: 12 DOSAGE FORM, 1/WEEK
     Route: 048
  10. VALACYCLOVIR HYDROCHLORIDE [Suspect]
     Active Substance: VALACYCLOVIR HYDROCHLORIDE
     Indication: Infection prophylaxis
     Dosage: 1 GRAM, QD
     Route: 048
  11. SULFAMETHOXAZOLE\TRIMETHOPRIM [Suspect]
     Active Substance: SULFAMETHOXAZOLE\TRIMETHOPRIM
     Indication: Infection prophylaxis
     Route: 048
  12. BLEOMYCIN SULFATE [Suspect]
     Active Substance: BLEOMYCIN SULFATE
     Indication: Hodgkin^s disease
     Route: 042
     Dates: end: 20240924
  13. POLYETHYLENE GLYCOLS [Suspect]
     Active Substance: POLYETHYLENE GLYCOLS
     Indication: Constipation
     Route: 048
  14. ACETAMINOPHEN [Suspect]
     Active Substance: ACETAMINOPHEN
     Indication: Vomiting
     Dosage: 1 GRAM, QD
     Route: 048
  15. ACETAMINOPHEN [Suspect]
     Active Substance: ACETAMINOPHEN
     Indication: Vomiting
     Route: 065
  16. DACARBAZINE [Suspect]
     Active Substance: DACARBAZINE
     Indication: Hodgkin^s disease
     Route: 042
  17. METOCLOPRAMIDE DIHYDROCHLORIDE [Suspect]
     Active Substance: METOCLOPRAMIDE DIHYDROCHLORIDE
     Indication: Nausea
     Dosage: 10 MILLIGRAM, QD
     Route: 048
  18. VINBLASTINE SULFATE [Suspect]
     Active Substance: VINBLASTINE SULFATE
     Indication: Hodgkin^s disease
     Route: 042

REACTIONS (1)
  - Neuropathy peripheral [Recovering/Resolving]

NARRATIVE: CASE EVENT DATE: 20240101
